FAERS Safety Report 5616577-4 (Version None)
Quarter: 2008Q1

REPORT INFORMATION
  Report Type: 
  Country: None (occurrence: None)
  Receive Date: 20080207
  Receipt Date: 20070806
  Transmission Date: 20080703
  Serious: No
  Sender: FDA-Public Use
  Company Number: A0668462A

PATIENT
  Age: 3 Month

DRUGS (1)
  1. PAXIL CR [Suspect]
     Dosage: 12.5MG PER DAY
     Dates: start: 20070801, end: 20070806

REACTIONS (2)
  - DRUG EXPOSURE VIA BREAST MILK [None]
  - FATIGUE [None]
